FAERS Safety Report 9442351 (Version 1)
Quarter: 2013Q3

REPORT INFORMATION
  Report Type: Spontaneous
  Country: US (occurrence: None)
  Receive Date: 20130805
  Receipt Date: 20130805
  Transmission Date: 20140515
  Serious: Yes (Other)
  Sender: FDA-Public Use
  Company Number: None

PATIENT
  Age: 15 None
  Sex: Female

DRUGS (4)
  1. MUPIROCIN [Suspect]
     Indication: CELLULITIS
     Route: 061
     Dates: start: 20130702, end: 20130704
  2. CEPHALEXIN [Concomitant]
  3. SULFAMETHOXAZOLE [Concomitant]
  4. VITAMIN C [Concomitant]

REACTIONS (3)
  - Rash [None]
  - Rash [None]
  - Rash [None]
